FAERS Safety Report 4604561-9 (Version None)
Quarter: 2005Q1

REPORT INFORMATION
  Report Type: 
  Country: None (occurrence: None)
  Receive Date: 20050310
  Receipt Date: 20031121
  Transmission Date: 20050727
  Serious: Yes (Hospitalization, Other)
  Sender: FDA-Public Use
  Company Number: US-MERCK-0311USA02547

PATIENT
  Age: 57 Year
  Sex: Male
  Weight: 105 kg

DRUGS (18)
  1. VIOXX [Suspect]
     Indication: RHEUMATOID ARTHRITIS
     Route: 048
     Dates: start: 20010101
  2. VIOXX [Suspect]
     Route: 048
  3. LASIX [Concomitant]
     Indication: OEDEMA PERIPHERAL
     Route: 065
     Dates: start: 20000101
  4. LASIX [Concomitant]
     Indication: CARDIAC DISORDER
     Route: 065
     Dates: start: 20000101
  5. ASPIRIN [Concomitant]
     Indication: PROPHYLAXIS
     Route: 065
     Dates: start: 19940101, end: 20020101
  6. ASPIRIN [Concomitant]
     Route: 065
     Dates: start: 20020101
  7. ASPIRIN [Concomitant]
     Indication: RHEUMATOID ARTHRITIS
     Route: 065
     Dates: start: 19940101, end: 20020101
  8. ASPIRIN [Concomitant]
     Route: 065
     Dates: start: 20020101
  9. TYLENOL W/ CODEINE NO. 3 [Concomitant]
     Route: 065
     Dates: start: 20010101, end: 20020101
  10. METHOTREXATE [Concomitant]
     Route: 065
     Dates: start: 20020101
  11. DILANTIN [Concomitant]
     Indication: CONVULSION
     Route: 065
     Dates: start: 20010101
  12. PREDNISONE [Concomitant]
     Route: 065
  13. K-DUR 10 [Concomitant]
     Route: 065
  14. MAGNESIUM (UNSPECIFIED) [Concomitant]
     Route: 065
  15. PROPAFENONE HYDROCHLORIDE [Concomitant]
     Route: 065
  16. COUMADIN [Concomitant]
     Route: 065
  17. DIGOXIN [Concomitant]
     Route: 065
  18. PROTONIX [Concomitant]
     Route: 065

REACTIONS (33)
  - AGGRESSION [None]
  - ANAEMIA [None]
  - ANEURYSM [None]
  - ANTICONVULSANT DRUG LEVEL BELOW THERAPEUTIC [None]
  - ANXIETY [None]
  - ATRIAL FIBRILLATION [None]
  - CALCULUS URETERIC [None]
  - CEREBRAL HAEMORRHAGE [None]
  - CEREBROVASCULAR ACCIDENT [None]
  - CONVULSION [None]
  - DEPRESSED LEVEL OF CONSCIOUSNESS [None]
  - DEPRESSION [None]
  - DYSPEPSIA [None]
  - DYSPNOEA [None]
  - ELECTROCARDIOGRAM ST SEGMENT DEPRESSION [None]
  - FATIGUE [None]
  - FIBRIN D DIMER INCREASED [None]
  - GAIT DISTURBANCE [None]
  - GOUT [None]
  - HAEMATURIA [None]
  - HYPERSOMNIA [None]
  - HYPERTENSION [None]
  - HYPOKALAEMIA [None]
  - MEMORY IMPAIRMENT [None]
  - MENTAL STATUS CHANGES [None]
  - NEPHROLITHIASIS [None]
  - RENAL COLIC [None]
  - STRESS [None]
  - SUBARACHNOID HAEMORRHAGE [None]
  - SUPRAVENTRICULAR EXTRASYSTOLES [None]
  - SUPRAVENTRICULAR TACHYCARDIA [None]
  - VENTRICULAR EXTRASYSTOLES [None]
  - VENTRICULAR TACHYCARDIA [None]
